FAERS Safety Report 11888619 (Version 2)
Quarter: 2016Q1

REPORT INFORMATION
  Report Type: Spontaneous
  Country: DE (occurrence: DE)
  Receive Date: 20160105
  Receipt Date: 20160217
  Transmission Date: 20160526
  Serious: Yes (Hospitalization, Other)
  Sender: FDA-Public Use
  Company Number: DE-BAYER-2016-000940

PATIENT
  Sex: Female

DRUGS (1)
  1. JAYDESS [Suspect]
     Active Substance: LEVONORGESTREL
     Dosage: 14 MCG/24HR, CONT
     Route: 015
     Dates: end: 201601

REACTIONS (3)
  - Abdominal discomfort [Not Recovered/Not Resolved]
  - Tubo-ovarian abscess [None]
  - Device expulsion [None]

NARRATIVE: CASE EVENT DATE: 201601
